FAERS Safety Report 11176206 (Version 1)
Quarter: 2015Q2

REPORT INFORMATION
  Report Type: Spontaneous
  Country: NZ (occurrence: NZ)
  Receive Date: 20150609
  Receipt Date: 20150609
  Transmission Date: 20150821
  Serious: Yes (Death, Other)
  Sender: FDA-Public Use
  Company Number: NZ-ALLERGAN-1510595US

PATIENT
  Age: 49 Year
  Sex: Female

DRUGS (2)
  1. PROPRANOLOL [Interacting]
     Active Substance: PROPRANOLOL\PROPRANOLOL HYDROCHLORIDE
     Indication: PRODUCT USED FOR UNKNOWN INDICATION
  2. PHENYLEPHRINE [Suspect]
     Active Substance: PHENYLEPHRINE\PHENYLEPHRINE HYDROCHLORIDE
     Indication: PRODUCT USED FOR UNKNOWN INDICATION
     Dosage: 10% SINGLE EYE DROP

REACTIONS (5)
  - Death [Fatal]
  - Subarachnoid haemorrhage [Unknown]
  - Heart rate decreased [Unknown]
  - Cerebral aneurysm perforation [Unknown]
  - Blood pressure increased [Unknown]
